FAERS Safety Report 14121034 (Version 2)
Quarter: 2019Q3

REPORT INFORMATION
  Report Type: Report from Study
  Country: US (occurrence: US)
  Receive Date: 20171024
  Receipt Date: 20190827
  Transmission Date: 20191004
  Serious: No
  Sender: FDA-Public Use
  Company Number: US-SA-2016SA192367

PATIENT
  Age: 37 Year
  Sex: Male

DRUGS (2)
  1. ALGLUCOSIDASE ALFA [Suspect]
     Active Substance: ALGLUCOSIDASE ALFA
     Indication: GLYCOGEN STORAGE DISEASE TYPE II
     Dosage: 1045 MG, QOW
     Route: 042
  2. ALGLUCOSIDASE ALFA [Suspect]
     Active Substance: ALGLUCOSIDASE ALFA
     Dosage: DOSE:1450(UNIT NOT REPORTED); FREQUENCY:Q1
     Route: 042
     Dates: start: 20120925

REACTIONS (5)
  - Palpitations [Not Recovered/Not Resolved]
  - Peripheral swelling [Not Recovered/Not Resolved]
  - Hypertension [Not Recovered/Not Resolved]
  - Anxiety [Unknown]
  - Hypopnoea [Unknown]

NARRATIVE: CASE EVENT DATE: 20190807
